FAERS Safety Report 5116992-1 (Version None)
Quarter: 2006Q3

REPORT INFORMATION
  Report Type: 
  Country: None (occurrence: None)
  Receive Date: 20060922
  Receipt Date: 20060919
  Transmission Date: 20061208
  Serious: Yes (Hospitalization)
  Sender: FDA-Public Use
  Company Number: HQWYE852119SEP06

PATIENT
  Age: 84 Year
  Sex: Female

DRUGS (9)
  1. INDERAL LA [Suspect]
     Dates: start: 19690101, end: 20040101
  2. HALF-INDERAL LA (PROPRANOLOL HYDROCHLORIDE) [Suspect]
     Dosage: 80 MG 1X PER 1 DAY
     Route: 048
     Dates: start: 20041001
  3. LANOXIN [Concomitant]
  4. COZAAR [Concomitant]
  5. ALBUTEROL SPIROS [Concomitant]
  6. BECLAZONE (BECLOMETASONE DIPROPIONATE) [Concomitant]
  7. CALCICHEW (CALCIUM CARBONATE) [Concomitant]
  8. SPIRIVA [Concomitant]
  9. AMLODIPINE BESYLATE [Concomitant]

REACTIONS (5)
  - ALOPECIA [None]
  - INFECTION [None]
  - PEMPHIGOID [None]
  - PRURITUS [None]
  - URTICARIA [None]
